FAERS Safety Report 17271473 (Version 1)
Quarter: 2020Q1

REPORT INFORMATION
  Report Type: Report from Study
  Country: JP (occurrence: JP)
  Receive Date: 20200115
  Receipt Date: 20200115
  Transmission Date: 20200409
  Serious: Yes (Other)
  Sender: FDA-Public Use
  Company Number: JP-ROCHE-2522771

PATIENT
  Age: 88 Year
  Sex: Female

DRUGS (1)
  1. ALTEPLASE. [Suspect]
     Active Substance: ALTEPLASE
     Indication: ISCHAEMIC STROKE
     Dosage: (1 IN 1 ONCE)
     Route: 042

REACTIONS (2)
  - NIH stroke scale score increased [Unknown]
  - Haemorrhage intracranial [Unknown]
